FAERS Safety Report 8003020-3 (Version None)
Quarter: 2011Q4

REPORT INFORMATION
  Report Type: 
  Country: None (occurrence: None)
  Receive Date: 20111222
  Receipt Date: 20110912
  Transmission Date: 20120403
  Serious: No
  Sender: FDA-Public Use
  Company Number: US-GLAXOSMITHKLINE-A0944166A

PATIENT
  Age: 45 Year
  Sex: Male

DRUGS (7)
  1. FISH OIL [Suspect]
     Route: 048
     Dates: start: 20110801, end: 20110911
  2. TRUVADA [Concomitant]
  3. AVODART [Suspect]
     Indication: PROSTATITIS
     Dosage: 1CAP PER DAY
     Route: 048
     Dates: start: 20090101
  4. LOVAZA [Suspect]
  5. UROXATRAL [Concomitant]
  6. FLAX SEED [Concomitant]
  7. KALETRA [Concomitant]

REACTIONS (6)
  - TESTICULAR PAIN [None]
  - ERECTION INCREASED [None]
  - OEDEMA PERIPHERAL [None]
  - PROSTATITIS [None]
  - SEMEN VISCOSITY DECREASED [None]
  - EJACULATION FAILURE [None]
